FAERS Safety Report 5802993-4 (Version None)
Quarter: 2008Q2

REPORT INFORMATION
  Report Type: 
  Country: None (occurrence: None)
  Receive Date: 20080626
  Receipt Date: 20080610
  Transmission Date: 20081010
  Serious: Yes (Other)
  Sender: FDA-Public Use
  Company Number: M-08-504

PATIENT
  Age: 1 Year
  Sex: Male

DRUGS (3)
  1. PROFILNINE SD [Suspect]
     Indication: FACTOR VIII DEFICIENCY
  2. FER-IN-SOL [Concomitant]
  3. SODIUM FLORIDE [Concomitant]

REACTIONS (1)
  - FACTOR IX INHIBITION [None]
